FAERS Safety Report 5892772-4 (Version None)
Quarter: 2008Q3

REPORT INFORMATION
  Report Type: 
  Country: None (occurrence: None)
  Receive Date: 20080919
  Receipt Date: 20080919
  Transmission Date: 20090109
  Serious: No
  Sender: FDA-Public Use
  Company Number: None

PATIENT
  Age: 34 Year
  Sex: Female
  Weight: 117.9352 kg

DRUGS (1)
  1. MULTIVITAMIN [Suspect]
     Indication: INFERTILITY FEMALE
     Dosage: 1 PER DAY PO
     Route: 048
     Dates: start: 20080717, end: 20080916

REACTIONS (3)
  - ECONOMIC PROBLEM [None]
  - MALAISE [None]
  - PHARMACEUTICAL PRODUCT COMPLAINT [None]
